FAERS Safety Report 4752630-5 (Version None)
Quarter: 2005Q3

REPORT INFORMATION
  Report Type: 
  Country: None (occurrence: None)
  Receive Date: 20050824
  Receipt Date: 20050811
  Transmission Date: 20060218
  Serious: Yes (Hospitalization, Other)
  Sender: FDA-Public Use
  Company Number: 2005095950

PATIENT
  Age: 42 Year
  Sex: Female
  Weight: 92.5338 kg

DRUGS (19)
  1. CELEBREX [Suspect]
     Indication: ARTHRITIS
     Dosage: 400 MG (200 MG, 2 IN 1 D), ORAL
     Route: 048
     Dates: end: 20031001
  2. CELEBREX [Suspect]
     Indication: HIDRADENITIS
     Dosage: 400 MG (200 MG, 2 IN 1 D), ORAL
     Route: 048
     Dates: end: 20031001
  3. CELEBREX [Suspect]
     Indication: MUSCLE STRAIN
     Dosage: 400 MG (200 MG, 2 IN 1 D), ORAL
     Route: 048
     Dates: end: 20031001
  4. CELEBREX [Suspect]
     Indication: OSTEOARTHRITIS
     Dosage: 400 MG (200 MG, 2 IN 1 D), ORAL
     Route: 048
     Dates: end: 20031001
  5. PROPRANOLOL [Concomitant]
  6. HYDROCHLOROTHIAZIDE [Concomitant]
  7. POTASSIUM CHLORIDE [Concomitant]
  8. GLUCOTROL XL [Concomitant]
  9. MAXZIDE [Concomitant]
  10. ALDACTONE [Concomitant]
  11. ACETYLSALICYLIC ACID SRT [Concomitant]
  12. LASIX [Concomitant]
  13. ZOCOR [Concomitant]
  14. LANOXIN [Concomitant]
  15. WELLBUTRIN SR [Concomitant]
  16. RESTORIL [Concomitant]
  17. TOPROL-XL [Concomitant]
  18. IMITREX [Concomitant]
  19. KLOR-CON [Concomitant]

REACTIONS (8)
  - ARRHYTHMIA [None]
  - CARDIAC FAILURE CONGESTIVE [None]
  - DIABETES MELLITUS [None]
  - DYSPNOEA [None]
  - MYOCARDIAL INFARCTION [None]
  - OEDEMA PERIPHERAL [None]
  - SWELLING FACE [None]
  - THROMBOSIS [None]
